FAERS Safety Report 6757483-1 (Version None)
Quarter: 2010Q2

REPORT INFORMATION
  Report Type: 
  Country: None (occurrence: None)
  Receive Date: 20100607
  Receipt Date: 20100524
  Transmission Date: 20101027
  Serious: No
  Sender: FDA-Public Use
  Company Number: US-BIOGENIDEC-2010BI017673

PATIENT
  Age: 36 Year
  Sex: Female

DRUGS (3)
  1. AVONEX [Suspect]
     Indication: MULTIPLE SCLEROSIS
     Route: 030
     Dates: start: 20061001, end: 20061001
  2. AVONEX [Suspect]
     Route: 030
     Dates: start: 20070901
  3. AVONEX [Suspect]
     Route: 030
     Dates: start: 20090717

REACTIONS (4)
  - CHILLS [None]
  - FACIAL PALSY [None]
  - FATIGUE [None]
  - HYPERHIDROSIS [None]
